FAERS Safety Report 9189760 (Version 1)
Quarter: 2013Q1

REPORT INFORMATION
  Report Type: Spontaneous
  Country: US (occurrence: US)
  Receive Date: 20130326
  Receipt Date: 20130326
  Transmission Date: 20140127
  Serious: Yes (Other)
  Sender: FDA-Public Use
  Company Number: US-PFIZER INC-2013095391

PATIENT
  Age: 10 Year
  Sex: Male

DRUGS (1)
  1. CHILDREN^S MOTRIN [Suspect]
     Indication: PYREXIA

REACTIONS (3)
  - Hallucination [Unknown]
  - Palpitations [Unknown]
  - Abnormal behaviour [Unknown]
